FAERS Safety Report 23442757 (Version 1)
Quarter: 2024Q1

REPORT INFORMATION
  Report Type: Spontaneous
  Country: IT (occurrence: None)
  Receive Date: 20240125
  Receipt Date: 20240125
  Transmission Date: 20240409
  Serious: Yes (Other)
  Sender: FDA-Public Use
  Company Number: IT-ADIENNEP-2024AD000001

PATIENT
  Sex: Female

DRUGS (6)
  1. THIOTEPA [Suspect]
     Active Substance: THIOTEPA
     Indication: Allogenic stem cell transplantation
     Dosage: 10 MG/KG/DAY, DAY -1
     Dates: start: 2019, end: 2019
  2. CYCLOPHOSPHAMIDE [Suspect]
     Active Substance: CYCLOPHOSPHAMIDE
     Indication: Allogenic stem cell transplantation
     Dosage: 50 MG/KG/DAY, DAYS -4 AND -3
     Dates: start: 2019, end: 2019
  3. MELPHALAN [Suspect]
     Active Substance: MELPHALAN
     Indication: Allogenic stem cell transplantation
     Dosage: 30 MG/M2/DAY, DAY -1
     Dates: start: 2019, end: 2019
  4. CYCLOSPORINE [Suspect]
     Active Substance: CYCLOSPORINE
     Indication: Prophylaxis against graft versus host disease
     Dosage: 1.5 MG/KG TWICE DAILY, FROM DAY -1
     Dates: start: 2019, end: 2019
  5. METHOTREXATE [Suspect]
     Active Substance: METHOTREXATE
     Indication: Prophylaxis against graft versus host disease
     Dosage: 10 MG/M2, THEN 8 MG/M2 ON DAYS 3 AND 6 ()
     Dates: start: 2019, end: 2019
  6. THYMOGLOBULIN [Suspect]
     Active Substance: LAPINE T-LYMPHOCYTE IMMUNE GLOBULIN
     Indication: Prophylaxis against graft versus host disease
     Dosage: 2.5 MG/KG ON DAYS -3 AND -2
     Dates: start: 2019, end: 2019

REACTIONS (3)
  - Chronic graft versus host disease [Unknown]
  - Pneumonia [Unknown]
  - Acute graft versus host disease in intestine [Unknown]

NARRATIVE: CASE EVENT DATE: 20200701
